FAERS Safety Report 6108008-5 (Version None)
Quarter: 2009Q1

REPORT INFORMATION
  Report Type: 
  Country: None (occurrence: None)
  Receive Date: 20090304
  Receipt Date: 20081217
  Transmission Date: 20090719
  Serious: Yes (Life-Threatening, Hospitalization)
  Sender: FDA-Public Use
  Company Number: US-002285

PATIENT
  Age: 89 Year
  Sex: Female
  Weight: 64 kg

DRUGS (17)
  1. ISOVUE-370 [Suspect]
     Indication: ACUTE MYOCARDIAL INFARCTION
     Dosage: 200ML QD INTRAVENOUS
     Route: 042
     Dates: start: 20081130, end: 20081130
  2. ISOVUE-370 [Suspect]
     Indication: CAROTID ARTERY OCCLUSION
     Dosage: 200ML QD INTRAVENOUS
     Route: 042
     Dates: start: 20081130, end: 20081130
  3. ISOVUE-370 [Suspect]
     Indication: CATHETERISATION CARDIAC
     Dosage: 200ML QD INTRAVENOUS
     Route: 042
     Dates: start: 20081130, end: 20081130
  4. HEPARIN [Suspect]
     Indication: ANTICOAGULANT THERAPY
     Dosage: 5000IU INTRAVENOUS , 2000IU INTRAVENOUS, 1000IU INTRAVENOUS
     Route: 042
     Dates: start: 20081130, end: 20081130
  5. HEPARIN [Suspect]
     Indication: ANTICOAGULANT THERAPY
     Dosage: 5000IU INTRAVENOUS , 2000IU INTRAVENOUS, 1000IU INTRAVENOUS
     Route: 042
     Dates: start: 20081130, end: 20081130
  6. HEPARIN [Suspect]
     Indication: ANTICOAGULANT THERAPY
     Dosage: 5000IU INTRAVENOUS , 2000IU INTRAVENOUS, 1000IU INTRAVENOUS
     Route: 042
     Dates: start: 20081130, end: 20081130
  7. DIPHENHYDRAMINE HCL [Concomitant]
  8. INTEGRILIN [Concomitant]
  9. NITROGLYCERIN [Concomitant]
  10. DOPAMINE HCL [Concomitant]
  11. FENTANYL-100 [Concomitant]
  12. LIDOCAINE (LIDOCAINE HYDROCHLORIDE) [Concomitant]
  13. FUROSEMIDE [Concomitant]
  14. SODIUM CHLORIDE [Concomitant]
  15. SOLU-MEDROL [Concomitant]
  16. NICARDIPINE HCL [Concomitant]
  17. PLAVIX [Concomitant]

REACTIONS (5)
  - AGITATION [None]
  - ANGIOEDEMA [None]
  - APHASIA [None]
  - CARDIOGENIC SHOCK [None]
  - RESPIRATORY FAILURE [None]
